FAERS Safety Report 13328823 (Version 1)
Quarter: 2017Q1

REPORT INFORMATION
  Report Type: Spontaneous
  Country: US (occurrence: US)
  Receive Date: 20170312
  Receipt Date: 20170312
  Transmission Date: 20170428
  Serious: Yes (Disabling)
  Sender: FDA-Public Use
  Company Number: None

PATIENT
  Age: 53 Year
  Sex: Female
  Weight: 72 kg

DRUGS (4)
  1. PRAVASTATIN. [Concomitant]
     Active Substance: PRAVASTATIN
  2. NAPROXEN. [Concomitant]
     Active Substance: NAPROXEN
  3. TERBINAFINE. [Suspect]
     Active Substance: TERBINAFINE
     Indication: ONYCHOMYCOSIS
     Dosage: ?          QUANTITY:45 TABLET(S);?
     Route: 048
     Dates: start: 20170130, end: 20170210
  4. CITRICAL +D [Concomitant]

REACTIONS (4)
  - Skin exfoliation [None]
  - Renal failure [None]
  - Back pain [None]
  - Dysstasia [None]

NARRATIVE: CASE EVENT DATE: 20170213
